FAERS Safety Report 6734713-3 (Version None)
Quarter: 2010Q2

REPORT INFORMATION
  Report Type: 
  Country: None (occurrence: None)
  Receive Date: 20100519
  Receipt Date: 20100519
  Transmission Date: 20101027
  Serious: Yes (Hospitalization)
  Sender: FDA-Public Use
  Company Number: None

PATIENT
  Sex: Male
  Weight: 95 kg

DRUGS (2)
  1. CEFAZOLIN [Suspect]
     Indication: CELLULITIS
     Dosage: 1 GRAM Q6H IV BOLUS
     Route: 040
     Dates: start: 20100406, end: 20100408
  2. CEPHALEXIN [Suspect]
     Indication: CELLULITIS
     Dosage: 500 MG QID PO
     Route: 048
     Dates: start: 20100408, end: 20100409

REACTIONS (4)
  - GOUT [None]
  - PAIN IN EXTREMITY [None]
  - PYREXIA [None]
  - STEVENS-JOHNSON SYNDROME [None]
